FAERS Safety Report 5736506-2 (Version None)
Quarter: 2008Q2

REPORT INFORMATION
  Report Type: 
  Country: None (occurrence: None)
  Receive Date: 20080513
  Receipt Date: 20080502
  Transmission Date: 20081010
  Serious: Yes (Other)
  Sender: FDA-Public Use
  Company Number: GB-ELI_LILLY_AND_COMPANY-GB200805001128

PATIENT
  Age: 53 Year
  Sex: Female
  Weight: 72 kg

DRUGS (5)
  1. CYMBALTA [Suspect]
     Indication: DEPRESSION
     Dosage: 60 MG, UNKNOWN
     Route: 048
     Dates: start: 20080418, end: 20080420
  2. CETIRIZINE HCL [Concomitant]
     Dosage: 10 MG, UNKNOWN
     Route: 048
  3. METFORMIN HCL [Concomitant]
     Dosage: UNK, UNKNOWN
     Route: 048
  4. TEMAZEPAM [Concomitant]
     Dosage: 20 MG, UNKNOWN
     Route: 048
  5. TRAMADOL HCL [Concomitant]
     Dosage: 50 MG, UNKNOWN
     Route: 048

REACTIONS (6)
  - BLISTER [None]
  - DECREASED APPETITE [None]
  - MALAISE [None]
  - OEDEMA MOUTH [None]
  - PAIN [None]
  - RASH [None]
